FAERS Safety Report 15352759 (Version 2)
Quarter: 2018Q3

REPORT INFORMATION
  Report Type: Spontaneous
  Country: FR (occurrence: FR)
  Receive Date: 20180905
  Receipt Date: 20180921
  Transmission Date: 20181010
  Serious: Yes (Hospitalization)
  Sender: FDA-Public Use
  Company Number: PHHY2018FR087778

PATIENT
  Age: 47 Year
  Sex: Male
  Weight: 100 kg

DRUGS (10)
  1. TACROLIMUS. [Suspect]
     Active Substance: TACROLIMUS
     Dosage: 11 MG, QD
     Route: 048
     Dates: start: 20170930
  2. TACROLIMUS. [Suspect]
     Active Substance: TACROLIMUS
     Dosage: 16 MG, QD
     Route: 048
     Dates: start: 20170706
  3. TACROLIMUS. [Suspect]
     Active Substance: TACROLIMUS
     Dosage: 22 MG, QD
     Route: 048
     Dates: start: 20170805
  4. TACROLIMUS. [Suspect]
     Active Substance: TACROLIMUS
     Dosage: 10 MG, UNK
     Route: 048
     Dates: start: 20171123
  5. TACROLIMUS. [Suspect]
     Active Substance: TACROLIMUS
     Dosage: 12 MG, QD
     Route: 048
     Dates: start: 20170928
  6. TACROLIMUS. [Suspect]
     Active Substance: TACROLIMUS
     Dosage: 12 MG, QD
     Route: 048
     Dates: start: 20170704
  7. TACROLIMUS. [Suspect]
     Active Substance: TACROLIMUS
     Dosage: 28 MG, QD
     Route: 048
     Dates: start: 20170709
  8. TACROLIMUS. [Suspect]
     Active Substance: TACROLIMUS
     Dosage: 24 MG, QD
     Route: 048
     Dates: start: 20170803
  9. TACROLIMUS. [Suspect]
     Active Substance: TACROLIMUS
     Indication: RENAL TRANSPLANT
     Dosage: 9 MG, QD
     Route: 048
     Dates: start: 20170630
  10. PROGRAF [Suspect]
     Active Substance: TACROLIMUS\TACROLIMUS ANHYDROUS
     Indication: PROPHYLAXIS
     Dosage: 8 MG, QD
     Route: 048
     Dates: start: 20170627

REACTIONS (2)
  - Clostridium test positive [Recovered/Resolved]
  - Urinary tract infection [Recovered/Resolved]

NARRATIVE: CASE EVENT DATE: 20170629
